FAERS Safety Report 19351538 (Version 1)
Quarter: 2021Q2

REPORT INFORMATION
  Report Type: Spontaneous
  Country: US (occurrence: US)
  Receive Date: 20210531
  Receipt Date: 20210531
  Transmission Date: 20210717
  Serious: No
  Sender: FDA-Public Use
  Company Number: US-SA-2021SA174730

PATIENT
  Sex: Male

DRUGS (1)
  1. DUPIXENT [Suspect]
     Active Substance: DUPILUMAB
     Dosage: 2 DF, 1X

REACTIONS (3)
  - Incorrect route of product administration [Recovered/Resolved]
  - Injection site pain [Recovered/Resolved]
  - Product preparation error [Recovered/Resolved]
